FAERS Safety Report 10597555 (Version 1)
Quarter: 2014Q4

REPORT INFORMATION
  Report Type: Spontaneous
  Country: US (occurrence: None)
  Receive Date: 20141119
  Receipt Date: 20141119
  Transmission Date: 20150529
  Serious: Yes (Other)
  Sender: FDA-Public Use
  Company Number: HA14-408-AE

PATIENT

DRUGS (2)
  1. TRAMADOL [Suspect]
     Active Substance: TRAMADOL
     Indication: PAIN
     Dosage: UNKNOWN UNKNOWN THERAPY DATES
  2. TRAMADOL [Suspect]
     Active Substance: TRAMADOL
     Indication: HERPES ZOSTER
     Dosage: UNKNOWN UNKNOWN THERAPY DATES

REACTIONS (1)
  - Drug ineffective [None]
